FAERS Safety Report 4521879-9 (Version None)
Quarter: 2004Q4

REPORT INFORMATION
  Report Type: 
  Country: None (occurrence: None)
  Receive Date: 20041207
  Receipt Date: 20041201
  Transmission Date: 20050328
  Serious: Yes (Life-Threatening, Hospitalization)
  Sender: FDA-Public Use
  Company Number: SYMT20040004

PATIENT
  Age: 74 Year
  Sex: Male

DRUGS (1)
  1. SYMMETREL [Suspect]
     Indication: HEPATITIS C
     Dosage: 500 MG DAILY PO
     Route: 048

REACTIONS (2)
  - DRUG LEVEL INCREASED [None]
  - MYOCARDIAL INFARCTION [None]
